FAERS Safety Report 9723749 (Version 3)
Quarter: 2013Q4

REPORT INFORMATION
  Report Type: Spontaneous
  Country: KR (occurrence: KR)
  Receive Date: 20131202
  Receipt Date: 20131209
  Transmission Date: 20140711
  Serious: Yes (Other)
  Sender: FDA-Public Use
  Company Number: PHHY2013KR100960

PATIENT
  Age: 52 Year
  Sex: Female

DRUGS (2)
  1. LAMISIL [Suspect]
     Indication: ONYCHOMYCOSIS
     Dosage: 500 MG, DAILY
     Route: 048
     Dates: start: 20130627, end: 20130827
  2. LAMISIL [Suspect]
     Dosage: 125 MG, UNK
     Route: 048

REACTIONS (6)
  - Oedema peripheral [Recovering/Resolving]
  - Face oedema [Recovering/Resolving]
  - Weight decreased [Unknown]
  - Ageusia [Not Recovered/Not Resolved]
  - Rash [Recovering/Resolving]
  - Constipation [Unknown]
